FAERS Safety Report 11702930 (Version 1)
Quarter: 2015Q4

REPORT INFORMATION
  Report Type: Spontaneous
  Country: JP (occurrence: JP)
  Receive Date: 20151105
  Receipt Date: 20151105
  Transmission Date: 20160304
  Serious: Yes (Hospitalization)
  Sender: FDA-Public Use
  Company Number: JP-PFIZER INC-2015326333

PATIENT
  Age: 68 Year
  Sex: Female
  Weight: 46 kg

DRUGS (6)
  1. DAITALIC [Concomitant]
     Active Substance: AZOSEMIDE
     Dosage: UNK
     Route: 048
     Dates: start: 20150801, end: 20150920
  2. NEXIUM [Concomitant]
     Active Substance: ESOMEPRAZOLE MAGNESIUM
     Dosage: UNK
     Route: 048
     Dates: start: 20150920
  3. NEXIUM [Concomitant]
     Active Substance: ESOMEPRAZOLE MAGNESIUM
     Dosage: UNK
  4. CORTRIL [Suspect]
     Active Substance: HYDROCORTISONE
     Dosage: 5 MG, UNK
     Route: 048
     Dates: end: 20150926
  5. BONOTEO [Concomitant]
     Active Substance: MINODRONIC ACID
     Route: 048
  6. NOVAMIN [Concomitant]
     Active Substance: PROCHLORPERAZINE MALEATE
     Dosage: UNK
     Route: 048
     Dates: start: 20150920

REACTIONS (2)
  - Dysphagia [Not Recovered/Not Resolved]
  - Oedema peripheral [Unknown]

NARRATIVE: CASE EVENT DATE: 20150926
